FAERS Safety Report 5655710-5 (Version None)
Quarter: 2008Q1

REPORT INFORMATION
  Report Type: 
  Country: None (occurrence: None)
  Receive Date: 20080307
  Receipt Date: 20080226
  Transmission Date: 20080703
  Serious: Yes (Other)
  Sender: FDA-Public Use
  Company Number: US-PFIZER INC-2008014100

PATIENT
  Sex: Male

DRUGS (10)
  1. CHANTIX [Suspect]
  2. CELEBREX [Suspect]
  3. MORPHINE [Suspect]
  4. LIPITOR [Concomitant]
  5. LISINOPRIL [Concomitant]
  6. METFORMIN HCL [Concomitant]
  7. GLUCOPHAGE [Concomitant]
  8. ACTOS [Concomitant]
  9. METOPROLOL TARTRATE [Concomitant]
  10. ASPIRIN [Concomitant]

REACTIONS (7)
  - AGITATION [None]
  - ANXIETY [None]
  - DELIRIUM [None]
  - HOMICIDAL IDEATION [None]
  - IRRITABILITY [None]
  - MOOD SWINGS [None]
  - SUICIDAL IDEATION [None]
